FAERS Safety Report 14308711 (Version 3)
Quarter: 2018Q3

REPORT INFORMATION
  Report Type: Spontaneous
  Country: US (occurrence: US)
  Receive Date: 20171220
  Receipt Date: 20180806
  Transmission Date: 20181010
  Serious: No
  Sender: FDA-Public Use
  Company Number: US-PFIZER INC-2017539882

PATIENT
  Age: 69 Year
  Sex: Female

DRUGS (22)
  1. SIMVASTATIN. [Concomitant]
     Active Substance: SIMVASTATIN
     Dosage: UNK
     Dates: start: 20091001
  2. ANASTROZOLE. [Concomitant]
     Active Substance: ANASTROZOLE
     Dosage: UNK
     Dates: start: 20130917, end: 20170426
  3. DOCETAXEL. [Suspect]
     Active Substance: DOCETAXEL
     Indication: INVASIVE LOBULAR BREAST CARCINOMA
  4. CYTOXAN [Concomitant]
     Active Substance: CYCLOPHOSPHAMIDE
     Indication: CHEMOTHERAPY
     Dosage: 600 MG/M2, UNK
  5. ALOXI [Concomitant]
     Active Substance: PALONOSETRON HYDROCHLORIDE
     Dosage: UNK
  6. NEULASTA [Concomitant]
     Active Substance: PEGFILGRASTIM
     Dosage: UNK
  7. KETOROLAC [Concomitant]
     Active Substance: KETOROLAC\KETOROLAC TROMETHAMINE
     Dosage: UNK, AS NEEDED
     Dates: start: 20111216
  8. CALCIUM [Concomitant]
     Active Substance: CALCIUM
     Dosage: UNK
     Dates: start: 19950101
  9. ASPIRIN. [Concomitant]
     Active Substance: ASPIRIN
     Dosage: UNK
     Dates: start: 20050101
  10. DOCETAXEL. [Suspect]
     Active Substance: DOCETAXEL
     Indication: BREAST CANCER FEMALE
     Dosage: 75 MG/M2, EVERY 3 WEEKS, FOUR CYCLES
     Dates: start: 20130401, end: 20130610
  11. NEOSAR [Concomitant]
     Active Substance: CYCLOPHOSPHAMIDE
     Indication: CHEMOTHERAPY
     Dosage: UNK
  12. TAXOTERE [Concomitant]
     Active Substance: DOCETAXEL
     Dosage: UNK
  13. HYDROCHLOROTHIAZIDE. [Concomitant]
     Active Substance: HYDROCHLOROTHIAZIDE
     Dosage: UNK
     Dates: start: 20090101
  14. FLUTICASONE. [Concomitant]
     Active Substance: FLUTICASONE
     Dosage: UNK
     Dates: start: 20130724
  15. CLARITIN [Concomitant]
     Active Substance: LORATADINE
     Dosage: UNK
  16. ZOFRAN [Concomitant]
     Active Substance: ONDANSETRON HYDROCHLORIDE
     Dosage: UNK
  17. ARIMIDEX [Concomitant]
     Active Substance: ANASTROZOLE
     Dosage: UNK
  18. DECADRON [Concomitant]
     Active Substance: DEXAMETHASONE
     Dosage: UNK
  19. FLONASE [Concomitant]
     Active Substance: FLUTICASONE PROPIONATE
     Dosage: UNK
  20. DEXAMETHASONE. [Concomitant]
     Active Substance: DEXAMETHASONE
     Dosage: UNK
  21. ATENOLOL. [Concomitant]
     Active Substance: ATENOLOL
     Dosage: UNK
     Dates: start: 19970101, end: 20170731
  22. SIMVASTATIN. [Concomitant]
     Active Substance: SIMVASTATIN
     Dosage: UNK
     Dates: start: 20090601, end: 20090930

REACTIONS (5)
  - Madarosis [Not Recovered/Not Resolved]
  - Hair texture abnormal [Not Recovered/Not Resolved]
  - Alopecia [Not Recovered/Not Resolved]
  - Hair colour changes [Not Recovered/Not Resolved]
  - Hair disorder [Not Recovered/Not Resolved]

NARRATIVE: CASE EVENT DATE: 20140610
